FAERS Safety Report 20932498 (Version 1)
Quarter: 2022Q2

REPORT INFORMATION
  Report Type: Other
  Country: US (occurrence: None)
  Receive Date: 20220608
  Receipt Date: 20220608
  Transmission Date: 20220720
  Serious: No
  Sender: FDA-Public Use
  Company Number: US-ROCHE-2842907

PATIENT
  Age: 55 Year
  Sex: Male

DRUGS (7)
  1. TOCILIZUMAB [Suspect]
     Active Substance: TOCILIZUMAB
     Indication: COVID-19
     Dosage: ON HOSPITAL DAY 5 AND 6 (2 DOSES).
     Route: 042
     Dates: start: 202004, end: 202004
  2. PRASUGREL [Concomitant]
     Active Substance: PRASUGREL
  3. EPTIFIBATIDE [Concomitant]
     Active Substance: EPTIFIBATIDE
  4. AZITHROMYCIN [Concomitant]
     Active Substance: AZITHROMYCIN
  5. HYDROXYCHLOROQUINE [Concomitant]
     Active Substance: HYDROXYCHLOROQUINE
  6. EPOPROSTENOL SODIUM [Concomitant]
     Active Substance: EPOPROSTENOL SODIUM
  7. DEXMEDETOMIDINE [Concomitant]
     Active Substance: DEXMEDETOMIDINE

REACTIONS (2)
  - Off label use [Unknown]
  - No adverse event [Unknown]
